FAERS Safety Report 6125854-2 (Version None)
Quarter: 2009Q1

REPORT INFORMATION
  Report Type: 
  Country: None (occurrence: None)
  Receive Date: 20090320
  Receipt Date: 20090310
  Transmission Date: 20090719
  Serious: Yes (Hospitalization)
  Sender: FDA-Public Use
  Company Number: US-BIOGENIDEC-2009BI004119

PATIENT
  Age: 30 Year
  Sex: Female

DRUGS (9)
  1. AVONEX [Suspect]
     Indication: MULTIPLE SCLEROSIS
     Route: 030
     Dates: start: 20020417, end: 20060901
  2. AVONEX [Suspect]
     Route: 030
     Dates: end: 20070106
  3. TOPAMAX [Concomitant]
     Indication: DRUG USE FOR UNKNOWN INDICATION
  4. IMMUNE GLOBULIN INTRAVENOUS (HUMAN) [Concomitant]
     Indication: DRUG USE FOR UNKNOWN INDICATION
  5. SEROQUEL [Concomitant]
     Indication: DRUG USE FOR UNKNOWN INDICATION
  6. KLONOPIN [Concomitant]
     Indication: DRUG USE FOR UNKNOWN INDICATION
  7. FLOMAX [Concomitant]
     Indication: DRUG USE FOR UNKNOWN INDICATION
  8. NEURONTIN [Concomitant]
     Indication: DRUG USE FOR UNKNOWN INDICATION
  9. FAMVIR [Concomitant]
     Indication: DRUG USE FOR UNKNOWN INDICATION

REACTIONS (11)
  - ABDOMINAL DISTENSION [None]
  - BACK PAIN [None]
  - DIARRHOEA [None]
  - DYSURIA [None]
  - GASTROINTESTINAL HYPOMOTILITY [None]
  - GASTROOESOPHAGEAL REFLUX DISEASE [None]
  - GENERAL SYMPTOM [None]
  - INTESTINAL OBSTRUCTION [None]
  - IRRITABLE BOWEL SYNDROME [None]
  - NAUSEA [None]
  - URINARY RETENTION [None]
